FAERS Safety Report 5792238-6 (Version None)
Quarter: 2008Q2

REPORT INFORMATION
  Report Type: 
  Country: None (occurrence: None)
  Receive Date: 20080623
  Receipt Date: 20080610
  Transmission Date: 20081010
  Serious: Yes (Hospitalization)
  Sender: FDA-Public Use
  Company Number: 2008BI015025

PATIENT
  Age: 48 Year
  Sex: Female

DRUGS (4)
  1. TYSABRI [Suspect]
     Indication: MULTIPLE SCLEROSIS
     Dosage: 300 MG;QM;IV
     Route: 042
     Dates: start: 20070413
  2. BACLOFEN [Concomitant]
  3. DANTROLENE SODIUM [Concomitant]
  4. ZANAFLEX [Concomitant]

REACTIONS (3)
  - NASOPHARYNGITIS [None]
  - PRODUCTIVE COUGH [None]
  - PULMONARY EMBOLISM [None]
